FAERS Safety Report 18659716 (Version 1)
Quarter: 2020Q4

REPORT INFORMATION
  Report Type: Spontaneous
  Country: AT (occurrence: AT)
  Receive Date: 20201224
  Receipt Date: 20201224
  Transmission Date: 20210114
  Serious: Yes (Other)
  Sender: FDA-Public Use
  Company Number: AT-PFIZER INC-2020507436

PATIENT
  Age: 53 Year
  Sex: Male

DRUGS (2)
  1. HALCION [Suspect]
     Active Substance: TRIAZOLAM
     Dosage: 3 DF, DAILY
  2. HALCION [Suspect]
     Active Substance: TRIAZOLAM
     Dosage: A HIGH DOSAGE
     Dates: start: 2005

REACTIONS (4)
  - Drug abuse [Unknown]
  - Fibroma [Not Recovered/Not Resolved]
  - Thyroid disorder [Not Recovered/Not Resolved]
  - Product use issue [Unknown]
